FAERS Safety Report 6337179-0 (Version None)
Quarter: 2009Q3

REPORT INFORMATION
  Report Type: 
  Country: None (occurrence: None)
  Receive Date: 20090831
  Receipt Date: 20090819
  Transmission Date: 20100115
  Serious: No
  Sender: FDA-Public Use
  Company Number: 362573

PATIENT
  Age: 20 Week

DRUGS (1)
  1. METHOTREXATE [Suspect]
     Indication: RHEUMATOID ARTHRITIS
     Dosage: 25 MG, 1 WEEK, TRANSPLACENTAL
     Route: 064
     Dates: start: 20080119, end: 20081120

REACTIONS (5)
  - CLEFT LIP [None]
  - CONGENITAL CHOROID PLEXUS CYST [None]
  - CONGENITAL CYSTIC LUNG [None]
  - MATERNAL DRUGS AFFECTING FOETUS [None]
  - TALIPES [None]
